FAERS Safety Report 8042035-6 (Version None)
Quarter: 2012Q1

REPORT INFORMATION
  Report Type: 
  Country: None (occurrence: None)
  Receive Date: 20120112
  Receipt Date: 20111228
  Transmission Date: 20120608
  Serious: Yes (Hospitalization)
  Sender: FDA-Public Use
  Company Number: FR-SANOFI-AVENTIS-2011SA085331

PATIENT
  Age: 81 Year
  Sex: Female

DRUGS (20)
  1. PHLOROGLUCINOL [Suspect]
     Dosage: FORM: DISPERSIBLE TABLETSTRENGTH: 60 MG
     Route: 048
     Dates: start: 20110816, end: 20110822
  2. ROSUVASTATIN CALCIUM [Suspect]
     Route: 048
     Dates: end: 20110822
  3. METOPROLOL TARTRATE [Concomitant]
     Route: 048
  4. FUROSEMIDE [Suspect]
     Route: 048
     Dates: start: 20110828
  5. FUROSEMIDE [Suspect]
     Route: 048
     Dates: end: 20110822
  6. LOPERAMIDE HCL [Suspect]
     Route: 048
     Dates: start: 20110706, end: 20110822
  7. PIASCLEDINE [Suspect]
     Route: 048
     Dates: end: 20110822
  8. MONOPLUS [Suspect]
     Dosage: 20/12.5 MG TABLET
     Route: 048
     Dates: end: 20110822
  9. DIGOXIN [Suspect]
     Dosage: FREQUENCY: 6 IN 1 WEEK
     Route: 048
     Dates: end: 20110822
  10. LANSOPRAZOLE [Suspect]
     Route: 048
     Dates: start: 20110706, end: 20110822
  11. ACETAMINOPHEN AND CODEINE PHOSPHATE [Suspect]
     Route: 048
     Dates: start: 20110316, end: 20110822
  12. PREVISCAN [Suspect]
     Route: 048
     Dates: start: 20110824
  13. DOMPERIDONE [Suspect]
     Route: 048
     Dates: start: 20110706, end: 20110822
  14. ZOLPIDEM [Suspect]
     Route: 048
     Dates: start: 20110726, end: 20110822
  15. FLECTOR [Suspect]
     Route: 061
     Dates: start: 20110608, end: 20110822
  16. GLUCOPHAGE [Suspect]
     Route: 048
     Dates: end: 20110822
  17. ORAL ANTIDIABETICS [Suspect]
     Route: 048
     Dates: start: 20110706, end: 20110822
  18. PREVISCAN [Suspect]
     Route: 048
     Dates: end: 20110822
  19. SMECTITE [Suspect]
     Route: 048
     Dates: start: 20110816, end: 20110822
  20. LEVOTHYROXINE SODIUM [Concomitant]
     Route: 048

REACTIONS (4)
  - METABOLIC ACIDOSIS [None]
  - DEHYDRATION [None]
  - RENAL FAILURE [None]
  - HYPERKALAEMIA [None]
